FAERS Safety Report 10017818 (Version 1)
Quarter: 2014Q1

REPORT INFORMATION
  Report Type: Spontaneous
  Country: US (occurrence: None)
  Receive Date: 20140313
  Receipt Date: 20140313
  Transmission Date: 20141002
  Serious: Yes (Other)
  Sender: FDA-Public Use
  Company Number: None

PATIENT
  Age: 84 Year
  Sex: Male
  Weight: 77.11 kg

DRUGS (2)
  1. LEVOCARNITINE [Suspect]
     Indication: AMMONIA INCREASED
     Dosage: 330/ 4 PILLS PER DAY BY MOUTH
     Dates: start: 201311
  2. ZANAX [Concomitant]

REACTIONS (13)
  - Nausea [None]
  - Flatulence [None]
  - Eructation [None]
  - Diarrhoea [None]
  - Skin odour abnormal [None]
  - Abdominal pain upper [None]
  - Myalgia [None]
  - Local swelling [None]
  - Dyspnoea [None]
  - Tremor [None]
  - Muscle spasms [None]
  - Vertigo [None]
  - Confusional state [None]
